FAERS Safety Report 5075704-0 (Version None)
Quarter: 2006Q3

REPORT INFORMATION
  Report Type: 
  Country: None (occurrence: None)
  Receive Date: 20060809
  Receipt Date: 20031105
  Transmission Date: 20061208
  Serious: Yes (Death, Hospitalization)
  Sender: FDA-Public Use
  Company Number: PHBS2003JP12378

PATIENT
  Age: 60 Year
  Sex: Female

DRUGS (2)
  1. GLEEVEC [Suspect]
     Indication: GASTROINTESTINAL STROMAL TUMOUR
     Dosage: 400 MG/DAY
     Route: 048
     Dates: start: 20030911, end: 20031003
  2. GLEEVEC [Suspect]
     Dosage: 100 MG/DAY
     Route: 048
     Dates: start: 20031001

REACTIONS (4)
  - HAEMOGLOBIN DECREASED [None]
  - HYPOGLYCAEMIA [None]
  - METASTASIS [None]
  - PANCYTOPENIA [None]
